FAERS Safety Report 20938349 (Version 2)
Quarter: 2022Q2

REPORT INFORMATION
  Report Type: Report from Study
  Country: US (occurrence: US)
  Receive Date: 20220609
  Receipt Date: 20220629
  Transmission Date: 20220721
  Serious: Yes (Other)
  Sender: FDA-Public Use
  Company Number: US-BRISTOL-MYERS SQUIBB COMPANY-2022-046775

PATIENT
  Age: 58 Year
  Sex: Male
  Weight: 92.98 kg

DRUGS (2)
  1. POMALYST [Suspect]
     Active Substance: POMALIDOMIDE
     Indication: Plasma cell myeloma
     Route: 048
  2. POMALYST [Suspect]
     Active Substance: POMALIDOMIDE
     Indication: Illness
     Dosage: FREQUENCY: DAILY FOR 21 DAYS
     Route: 048

REACTIONS (6)
  - Pain in extremity [Unknown]
  - Neuralgia [Recovering/Resolving]
  - Hypoaesthesia [Recovering/Resolving]
  - Pain [Recovering/Resolving]
  - Product dose omission issue [Recovering/Resolving]
  - Drug ineffective [Unknown]
